FAERS Safety Report 12328159 (Version 1)
Quarter: 2016Q2

REPORT INFORMATION
  Report Type: Spontaneous
  Country: US (occurrence: US)
  Receive Date: 20160503
  Receipt Date: 20160503
  Transmission Date: 20160815
  Serious: No
  Sender: FDA-Public Use
  Company Number: US-PERRIGO-15US003363

PATIENT
  Age: 74 Year
  Sex: Male
  Weight: 86.17 kg

DRUGS (2)
  1. NAPROXEN SODIUM-PSEUDOEPHEDRINE HYDROCHLORIDE [Suspect]
     Active Substance: NAPROXEN SODIUM\PSEUDOEPHEDRINE HYDROCHLORIDE
     Indication: SINUS DISORDER
     Dosage: 1 TABLET, EVERY 12 HOURS
     Route: 048
     Dates: start: 20150314, end: 20150314
  2. NAPROXEN SODIUM-PSEUDOEPHEDRINE HYDROCHLORIDE [Suspect]
     Active Substance: NAPROXEN SODIUM\PSEUDOEPHEDRINE HYDROCHLORIDE
     Indication: SINUS CONGESTION
     Dosage: 1 TABLET, EVERY 12 HOURS
     Route: 048
     Dates: start: 20150318

REACTIONS (4)
  - Expired product administered [Unknown]
  - Feeling abnormal [Unknown]
  - Malaise [Unknown]
  - Insomnia [Unknown]

NARRATIVE: CASE EVENT DATE: 20150314
